FAERS Safety Report 6089447-8 (Version None)
Quarter: 2009Q1

REPORT INFORMATION
  Report Type: 
  Country: None (occurrence: None)
  Receive Date: 20090220
  Receipt Date: 20090220
  Transmission Date: 20090719
  Serious: No
  Sender: FDA-Public Use
  Company Number: None

PATIENT
  Sex: Female
  Weight: 90.7194 kg

DRUGS (1)
  1. FORTEO [Suspect]
     Dosage: 20 MCG DAILY SQ
     Route: 058
     Dates: start: 20090120, end: 20090218

REACTIONS (8)
  - ACCIDENTAL EXPOSURE [None]
  - DEPRESSION [None]
  - ERYTHEMA [None]
  - EYE DISCHARGE [None]
  - INCORRECT ROUTE OF DRUG ADMINISTRATION [None]
  - MASKED FACIES [None]
  - SKIN EXFOLIATION [None]
  - SYSTEMIC LUPUS ERYTHEMATOSUS [None]
